FAERS Safety Report 4559402-5 (Version None)
Quarter: 2005Q1

REPORT INFORMATION
  Report Type: 
  Country: None (occurrence: None)
  Receive Date: 20050119
  Receipt Date: 20050105
  Transmission Date: 20050727
  Serious: Yes (Other)
  Sender: FDA-Public Use
  Company Number: A-CH2005-08498

PATIENT
  Age: 67 Year
  Sex: Female
  Weight: 77 kg

DRUGS (3)
  1. ZAVESCA [Suspect]
     Indication: GAUCHER'S DISEASE
     Dosage: 100 MG, QD, ORAL
     Route: 048
     Dates: start: 20031105, end: 20031201
  2. ZAVESCA [Suspect]
     Indication: GAUCHER'S DISEASE
     Dosage: 100 MG, QD, ORAL
     Route: 048
     Dates: start: 20031201, end: 20040401
  3. ZAVESCA [Suspect]
     Indication: GAUCHER'S DISEASE
     Dosage: 100 MG, QD, ORAL
     Route: 048
     Dates: start: 20040901, end: 20041101

REACTIONS (1)
  - PANCYTOPENIA [None]
